FAERS Safety Report 7254808-8 (Version None)
Quarter: 2011Q1

REPORT INFORMATION
  Report Type: 
  Country: None (occurrence: None)
  Receive Date: 20110129
  Receipt Date: 20100223
  Transmission Date: 20110831
  Serious: No
  Sender: FDA-Public Use
  Company Number: US-ABBOTT-10P-163-0629288-00

PATIENT
  Sex: Female
  Weight: 77.18 kg

DRUGS (8)
  1. HUMIRA [Suspect]
     Indication: PSORIATIC ARTHROPATHY
     Route: 058
     Dates: start: 20090101
  2. OXYCODONE HCL [Concomitant]
     Indication: PRODUCT USED FOR UNKNOWN INDICATION
  3. OXYCONTIN [Concomitant]
     Indication: PAIN
  4. TOPIRAMATE [Concomitant]
     Indication: PRODUCT USED FOR UNKNOWN INDICATION
     Dosage: AT BED TIME
  5. TEMAZEPAM [Concomitant]
     Indication: INSOMNIA
  6. CLONAZEPAM [Concomitant]
     Indication: ANXIETY
  7. GABITRIL [Concomitant]
     Indication: PANIC ATTACK
  8. RISPERDAL [Concomitant]
     Indication: INSOMNIA

REACTIONS (3)
  - MASS [None]
  - PAIN [None]
  - ALOPECIA [None]
